FAERS Safety Report 7624691-7 (Version None)
Quarter: 2011Q3

REPORT INFORMATION
  Report Type: 
  Country: None (occurrence: None)
  Receive Date: 20110720
  Receipt Date: 20091122
  Transmission Date: 20111222
  Serious: Yes (Death, Other)
  Sender: FDA-Public Use
  Company Number: US-BAYER-2011-009702

PATIENT
  Age: 46 Year
  Sex: Male
  Weight: 155 kg

DRUGS (14)
  1. TRASYLOL [Suspect]
     Dosage: 50 ML/HR INFUSION DOSE
     Route: 042
     Dates: start: 20050626, end: 20050626
  2. VANCOMYCIN [Concomitant]
     Dosage: 1 G, UNK
     Route: 042
     Dates: start: 20050626
  3. PLATELETS [Concomitant]
     Dosage: 2 U, UNK
     Route: 042
     Dates: start: 20050626
  4. MANNITOL [Concomitant]
     Dosage: 12.5 G, UNK
     Dates: start: 20050626, end: 20050626
  5. TRASYLOL [Suspect]
     Dosage: 200 ML LOADING DOSE
     Route: 042
     Dates: start: 20050626, end: 20050626
  6. HEPARIN [Concomitant]
     Dosage: 41000 U, UNK
     Route: 042
     Dates: start: 20050626
  7. FRESH FROZEN PLASMA [Concomitant]
     Dosage: 1 U, UNK
     Route: 042
     Dates: start: 20050626
  8. ANCEF [Concomitant]
     Dosage: 1 G, UNK
     Route: 042
     Dates: start: 20050626
  9. CLONIDINE [Concomitant]
  10. VERSED [Concomitant]
     Dosage: 3 MG, UNK
     Route: 042
     Dates: start: 20050626
  11. PROTAMINE SULFATE [Concomitant]
     Dosage: 400 MG, UNK
     Route: 042
     Dates: start: 20050626
  12. TRASYLOL [Suspect]
     Indication: SURGERY
     Dosage: 200 ML CARDIOPULMONARY BYPASS PRIME
     Route: 042
     Dates: start: 20050626, end: 20050626
  13. ACETYLSALICYLIC ACID SRT [Concomitant]
  14. RED BLOOD CELLS [Concomitant]
     Dosage: 3 U, UNK
     Route: 042
     Dates: start: 20050626

REACTIONS (13)
  - INJURY [None]
  - PAIN [None]
  - DEPRESSION [None]
  - DEATH [None]
  - MYOCARDIAL INFARCTION [None]
  - RENAL INJURY [None]
  - UNEVALUABLE EVENT [None]
  - ANHEDONIA [None]
  - CEREBROVASCULAR ACCIDENT [None]
  - RENAL FAILURE [None]
  - EMOTIONAL DISTRESS [None]
  - ANXIETY [None]
  - FEAR [None]
